FAERS Safety Report 9296076 (Version 1)
Quarter: 2013Q2

REPORT INFORMATION
  Report Type: Spontaneous
  Country: US (occurrence: US)
  Receive Date: 20130517
  Receipt Date: 20130517
  Transmission Date: 20140414
  Serious: No
  Sender: FDA-Public Use
  Company Number: US-009507513-1305USA002158

PATIENT
  Sex: Female

DRUGS (2)
  1. MIRALAX [Suspect]
     Indication: PRODUCT USED FOR UNKNOWN INDICATION
     Dosage: UNK, UNKNOWN
     Route: 048
     Dates: start: 20130415
  2. MIRALAX [Suspect]
     Indication: MEDICAL OBSERVATION

REACTIONS (5)
  - Muscle spasms [Not Recovered/Not Resolved]
  - Growing pains [Not Recovered/Not Resolved]
  - Adverse reaction [Not Recovered/Not Resolved]
  - Underdose [Unknown]
  - Off label use [Unknown]
